FAERS Safety Report 9671044 (Version 1)
Quarter: 2013Q4

REPORT INFORMATION
  Report Type: Spontaneous
  Country: US (occurrence: None)
  Receive Date: 20131105
  Receipt Date: 20131105
  Transmission Date: 20140711
  Serious: Yes (Other)
  Sender: FDA-Public Use
  Company Number: None

PATIENT
  Age: 78 Year
  Sex: Male

DRUGS (1)
  1. XTANDI [Suspect]
     Route: 048
     Dates: start: 20130814, end: 20131030

REACTIONS (6)
  - Prostatic specific antigen increased [None]
  - Arthralgia [None]
  - Myalgia [None]
  - Fatigue [None]
  - Asthenia [None]
  - Decreased appetite [None]
